FAERS Safety Report 6550105-4 (Version None)
Quarter: 2010Q1

REPORT INFORMATION
  Report Type: 
  Country: None (occurrence: None)
  Receive Date: 20100125
  Receipt Date: 20100115
  Transmission Date: 20100710
  Serious: Yes (Life-Threatening, Hospitalization)
  Sender: FDA-Public Use
  Company Number: HR-PFIZER INC-2010005788

PATIENT
  Age: 55 Year
  Sex: Female

DRUGS (3)
  1. CADUET [Suspect]
     Dosage: 5/10 MG, 1X/DAY
     Route: 048
     Dates: start: 20090508
  2. OMACOR [Concomitant]
     Dosage: UNK
     Dates: start: 20090820
  3. PEPTORAN [Concomitant]
     Dosage: UNK
     Dates: start: 20090820

REACTIONS (1)
  - ATRIOVENTRICULAR BLOCK COMPLETE [None]
